FAERS Safety Report 8449910 (Version 3)
Quarter: 2013Q1

REPORT INFORMATION
  Report Type: Spontaneous
  Country: DK (occurrence: DK)
  Receive Date: 20120309
  Receipt Date: 20130321
  Transmission Date: 20140127
  Serious: Yes (Hospitalization, Disabling, Other)
  Sender: FDA-Public Use
  Company Number: DK-PFIZER INC-2012059180

PATIENT
  Age: 20 Year
  Sex: Male
  Weight: 104 kg

DRUGS (7)
  1. LYRICA [Suspect]
     Indication: ANXIETY
     Dosage: 300 MG, 2X/DAY
     Dates: start: 2007
  2. LYRICA [Suspect]
     Indication: GENERALISED ANXIETY DISORDER
     Dosage: 300 MG, 6X/DAY
  3. LYRICA [Suspect]
     Dosage: UNK
     Route: 045
     Dates: start: 20110625
  4. LYRICA [Suspect]
     Dosage: 150 MG, 2X/DAY
     Route: 048
     Dates: start: 20110905
  5. SEROQUEL [Concomitant]
     Dosage: UNK
  6. XEPLION [Concomitant]
     Indication: SCHIZOPHRENIA
     Dosage: UNK
     Dates: start: 20111122
  7. ZOLPIDEM [Concomitant]
     Dosage: UNK

REACTIONS (5)
  - Convulsion [Not Recovered/Not Resolved]
  - Drug abuse [Not Recovered/Not Resolved]
  - Tooth loss [Unknown]
  - Upper limb fracture [Unknown]
  - Limb injury [Unknown]
